FAERS Safety Report 6086690-9 (Version None)
Quarter: 2009Q1

REPORT INFORMATION
  Report Type: 
  Country: None (occurrence: None)
  Receive Date: 20090223
  Receipt Date: 20090211
  Transmission Date: 20090719
  Serious: Yes (Other)
  Sender: FDA-Public Use
  Company Number: US-PFIZER INC-2009169019

PATIENT
  Sex: Male
  Weight: 79.378 kg

DRUGS (3)
  1. NORVASC [Suspect]
     Indication: HYPERTENSION
  2. LIPITOR [Suspect]
     Indication: BLOOD CHOLESTEROL INCREASED
  3. PREVACID [Concomitant]

REACTIONS (1)
  - BLOOD PRESSURE FLUCTUATION [None]
